FAERS Safety Report 24999571 (Version 1)
Quarter: 2025Q1

REPORT INFORMATION
  Report Type: Spontaneous
  Country: US (occurrence: US)
  Receive Date: 20250222
  Receipt Date: 20250222
  Transmission Date: 20250408
  Serious: No
  Sender: SANOFI AVENTIS
  Company Number: US-SA-2025SA045820

PATIENT
  Age: 67 Year
  Sex: Male

DRUGS (9)
  1. DUPIXENT [Suspect]
     Active Substance: DUPILUMAB
     Indication: Dermatitis atopic
     Dosage: 300 MG, QOW
     Route: 058
     Dates: start: 202008
  2. SIMVASTATIN [Concomitant]
     Active Substance: SIMVASTATIN
  3. FISH OIL [Concomitant]
     Active Substance: FISH OIL
  4. MELOXICAM [Concomitant]
     Active Substance: MELOXICAM
  5. TACROLIMUS [Concomitant]
     Active Substance: TACROLIMUS
  6. MYRBETRIQ [Concomitant]
     Active Substance: MIRABEGRON
  7. HYDROCHLOROTHIAZIDE [Concomitant]
     Active Substance: HYDROCHLOROTHIAZIDE
  8. PREDNISONE [Concomitant]
     Active Substance: PREDNISONE
  9. TERBINAFINE [Concomitant]
     Active Substance: TERBINAFINE

REACTIONS (1)
  - Dermatitis atopic [Unknown]

NARRATIVE: CASE EVENT DATE: 20250101
